FAERS Safety Report 8596009 (Version 4)
Quarter: 2014Q1

REPORT INFORMATION
  Report Type: Spontaneous
  Country: US (occurrence: US)
  Receive Date: 20120605
  Receipt Date: 20140127
  Transmission Date: 20141002
  Serious: Yes (Hospitalization, Disabling, Other)
  Sender: FDA-Public Use
  Company Number: US-ASTRAZENECA-2012SE35585

PATIENT
  Age: 51 Year
  Sex: Female
  Weight: 63.5 kg

DRUGS (25)
  1. NEXIUM [Suspect]
     Indication: ULCER
     Route: 048
     Dates: start: 2002
  2. NEXIUM [Suspect]
     Indication: GASTROOESOPHAGEAL REFLUX DISEASE
     Route: 048
     Dates: start: 2002
  3. NEXIUM [Suspect]
     Indication: ULCER
     Route: 048
     Dates: start: 20060418
  4. NEXIUM [Suspect]
     Indication: GASTROOESOPHAGEAL REFLUX DISEASE
     Route: 048
     Dates: start: 20060418
  5. PRILOSEC [Suspect]
     Route: 048
  6. PREVACID [Concomitant]
     Dates: start: 20060418
  7. ZANTAC [Concomitant]
  8. TAGAMET [Concomitant]
     Dates: start: 2003, end: 2013
  9. TUMS [Concomitant]
  10. ROLAIDS [Concomitant]
  11. MYLANTA [Concomitant]
  12. PEPTO BISMOL [Concomitant]
     Dosage: AS NEEDED
  13. PEPSIN [Concomitant]
  14. PROCHLORPARAZINE [Concomitant]
  15. SIMVASTATIN [Concomitant]
  16. ALPRAZOLAM [Concomitant]
  17. LORATADINE [Concomitant]
  18. ATENOLOL [Concomitant]
  19. DIPHENHYDRAMINE [Concomitant]
  20. GABAPENTIN [Concomitant]
  21. FISH OIL [Concomitant]
  22. LISINOPRIL [Concomitant]
  23. PREMARIN [Concomitant]
  24. NAPROZEN [Concomitant]
  25. PROTONIX [Concomitant]
     Dates: start: 20060301

REACTIONS (14)
  - Carpal tunnel syndrome [Unknown]
  - Back disorder [Unknown]
  - Muscle strain [Unknown]
  - Asthenia [Unknown]
  - Mental disorder [Unknown]
  - Nerve compression [Unknown]
  - Meniscus injury [Unknown]
  - Arthritis [Unknown]
  - Arthralgia [Unknown]
  - Osteoporosis [Unknown]
  - Ligament sprain [Unknown]
  - Upper limb fracture [Unknown]
  - Multiple fractures [Unknown]
  - Lower limb fracture [Unknown]
